FAERS Safety Report 14927260 (Version 1)
Quarter: 2018Q2

REPORT INFORMATION
  Report Type: Spontaneous
  Country: US (occurrence: US)
  Receive Date: 20180504
  Receipt Date: 20180504
  Transmission Date: 20180711
  Serious: Yes (Death)
  Sender: FDA-Public Use
  Company Number: None

PATIENT
  Age: 65 Year
  Sex: Male

DRUGS (23)
  1. MIRTAZAPINE. [Concomitant]
     Active Substance: MIRTAZAPINE
  2. HYDROCO APAP [Concomitant]
  3. TARCEVA [Suspect]
     Active Substance: ERLOTINIB HYDROCHLORIDE
     Indication: LUNG NEOPLASM MALIGNANT
     Route: 048
     Dates: start: 20170928, end: 20180501
  4. THYROID TAB [Concomitant]
  5. TAMSULOSIN [Concomitant]
     Active Substance: TAMSULOSIN
  6. NASACORT [Concomitant]
     Active Substance: TRIAMCINOLONE ACETONIDE
  7. ELIQUIS [Concomitant]
     Active Substance: APIXABAN
  8. BUT APAP CAF [Concomitant]
  9. SUPREP BOWEL SOL [Concomitant]
  10. POT CITRATE [Concomitant]
     Active Substance: POTASSIUM CITRATE
  11. LEVOLIOTHYR [Concomitant]
  12. FENTANYL. [Concomitant]
     Active Substance: FENTANYL
  13. DEXAMETHASON [Concomitant]
     Active Substance: DEXAMETHASONE
  14. HYDROMORPHON [Concomitant]
     Active Substance: HYDROMORPHONE
  15. TRANSDERM [Concomitant]
  16. LEVETIRACETA [Concomitant]
  17. MEGESTROL [Concomitant]
     Active Substance: MEGESTROL
  18. POTASSIUM [Concomitant]
     Active Substance: POTASSIUM
  19. MNOCYLINE [Concomitant]
  20. LORAZEPAM. [Concomitant]
     Active Substance: LORAZEPAM
  21. DOXYCYCL HYC [Concomitant]
  22. CELECOXIB. [Concomitant]
     Active Substance: CELECOXIB
  23. SYNTHROID [Concomitant]
     Active Substance: LEVOTHYROXINE SODIUM

REACTIONS (1)
  - Death [None]

NARRATIVE: CASE EVENT DATE: 20180501
